FAERS Safety Report 7085779-5 (Version None)
Quarter: 2010Q4

REPORT INFORMATION
  Report Type: 
  Country: None (occurrence: None)
  Receive Date: 20101105
  Receipt Date: 20101028
  Transmission Date: 20110411
  Serious: Yes (Hospitalization)
  Sender: FDA-Public Use
  Company Number: PL-B.I. PHARMACEUTICALS,INC./RIDGEFIELD-2010-BP-12357YA

PATIENT
  Age: 90 Year
  Sex: Male
  Weight: 60 kg

DRUGS (6)
  1. OMNIC OCAS ORODISPERSABLE [Suspect]
     Indication: BENIGN PROSTATIC HYPERPLASIA
     Route: 048
     Dates: start: 20100923, end: 20100925
  2. PROSCAR [Suspect]
     Indication: BENIGN PROSTATIC HYPERPLASIA
     Route: 048
     Dates: start: 20100923, end: 20100930
  3. MADOPAR (LEVODOPA) [Concomitant]
  4. ZOCOR [Concomitant]
  5. MAGNEX + B6 VITAMIINI (MAGNESIUM OXIDE, PYRIDOXINE HYDROCHLORIDE) [Concomitant]
  6. PYRIDOXINE HCL [Concomitant]

REACTIONS (8)
  - COUGH [None]
  - DIARRHOEA [None]
  - DYSPHONIA [None]
  - GENITAL SWELLING [None]
  - INFLUENZA LIKE ILLNESS [None]
  - OEDEMA PERIPHERAL [None]
  - RESPIRATORY RATE INCREASED [None]
  - SWELLING FACE [None]
